FAERS Safety Report 5555530-6 (Version None)
Quarter: 2007Q4

REPORT INFORMATION
  Report Type: 
  Country: None (occurrence: None)
  Receive Date: 20071213
  Receipt Date: 20070821
  Transmission Date: 20080405
  Serious: No
  Sender: FDA-Public Use
  Company Number: US-AMGEN-KDL239801

PATIENT
  Sex: Female

DRUGS (4)
  1. ENBREL [Suspect]
     Indication: RHEUMATOID ARTHRITIS
     Route: 058
     Dates: start: 20030901
  2. PLAQUENIL [Concomitant]
     Route: 048
     Dates: start: 19980101
  3. ARAVA [Concomitant]
     Route: 048
     Dates: start: 19980101
  4. METHOTREXATE [Concomitant]
     Route: 048
     Dates: start: 19980101

REACTIONS (4)
  - FEELING ABNORMAL [None]
  - INFLUENZA LIKE ILLNESS [None]
  - NAUSEA [None]
  - PAIN [None]
